FAERS Safety Report 5475402-5 (Version None)
Quarter: 2007Q4

REPORT INFORMATION
  Report Type: 
  Country: None (occurrence: None)
  Receive Date: 20071003
  Receipt Date: 20070926
  Transmission Date: 20080405
  Serious: Yes (Hospitalization)
  Sender: FDA-Public Use
  Company Number: PHRM2007FR02257

PATIENT
  Age: 77 Year
  Sex: Female

DRUGS (4)
  1. EXELON [Concomitant]
     Route: 048
  2. SERESTA [Concomitant]
  3. NOVONORM [Concomitant]
  4. LEPONEX [Suspect]
     Indication: PSYCHOTIC DISORDER
     Dosage: 0.5 DF, QD
     Route: 048
     Dates: start: 20070219, end: 20070222

REACTIONS (6)
  - AGITATION [None]
  - ANXIETY [None]
  - CONDITION AGGRAVATED [None]
  - HALLUCINATION, VISUAL [None]
  - NEUTROPENIA [None]
  - TACHYCARDIA [None]
